FAERS Safety Report 10384184 (Version 2)
Quarter: 2014Q3

REPORT INFORMATION
  Report Type: Spontaneous
  Country: KR (occurrence: KR)
  Receive Date: 20140814
  Receipt Date: 20140821
  Transmission Date: 20150326
  Serious: Yes (Other)
  Sender: FDA-Public Use
  Company Number: PHHY2014KR098801

PATIENT
  Age: 23 Year
  Sex: Male
  Weight: 56.7 kg

DRUGS (4)
  1. ETHAMBUTOL [Suspect]
     Active Substance: ETHAMBUTOL HYDROCHLORIDE
     Indication: PERITONEAL TUBERCULOSIS
     Dosage: 1200 MG, UNK
  2. PYRAZINAMIDE. [Suspect]
     Active Substance: PYRAZINAMIDE
     Indication: PERITONEAL TUBERCULOSIS
     Dosage: 1500 MG, UNK
  3. ISONIAZID. [Suspect]
     Active Substance: ISONIAZID
     Indication: PERITONEAL TUBERCULOSIS
     Dosage: 300 MG, UNK
  4. RIFAMPICIN [Suspect]
     Active Substance: RIFAMPIN
     Indication: PERITONEAL TUBERCULOSIS
     Dosage: 600 MG, UNK

REACTIONS (5)
  - Tuberculosis [Recovered/Resolved]
  - Paradoxical drug reaction [Unknown]
  - Hepatic necrosis [Recovered/Resolved]
  - Hepatic lesion [Recovered/Resolved]
  - Liver abscess [Recovered/Resolved]
